FAERS Safety Report 5488456-7 (Version None)
Quarter: 2007Q4

REPORT INFORMATION
  Report Type: 
  Country: None (occurrence: None)
  Receive Date: 20071017
  Receipt Date: 20071008
  Transmission Date: 20080405
  Serious: Yes (Death, Life-Threatening, Other)
  Sender: FDA-Public Use
  Company Number: US-JNJFOC-20070606516

PATIENT
  Age: 46 Year
  Sex: Male

DRUGS (7)
  1. PREZISTA [Suspect]
     Route: 048
  2. PREZISTA [Suspect]
     Indication: HIV INFECTION
     Route: 048
  3. MK-0518/PLACEBO [Suspect]
     Indication: HIV INFECTION
     Route: 048
  4. TRUVADA [Suspect]
     Indication: HIV INFECTION
     Route: 048
  5. LASIX [Concomitant]
     Route: 065
  6. BACTRIM [Concomitant]
     Route: 065
  7. ANDROGEL [Concomitant]
     Route: 065

REACTIONS (1)
  - MYOCARDITIS [None]
